FAERS Safety Report 4756642-7 (Version None)
Quarter: 2005Q3

REPORT INFORMATION
  Report Type: 
  Country: None (occurrence: None)
  Receive Date: 20050830
  Receipt Date: 20050622
  Transmission Date: 20060218
  Serious: Yes (Disabling)
  Sender: FDA-Public Use
  Company Number: US-GLAXOSMITHKLINE-A0563816A

PATIENT
  Age: 54 Year
  Sex: Female

DRUGS (6)
  1. LAMICTAL [Suspect]
     Indication: BIPOLAR DISORDER
     Route: 048
     Dates: start: 20050501, end: 20050701
  2. EFFEXOR [Concomitant]
  3. ALBUTEROL [Concomitant]
  4. SYNTHROID [Concomitant]
  5. ZYPREXA [Concomitant]
  6. PREDNISONE [Concomitant]

REACTIONS (6)
  - ADVERSE EVENT [None]
  - DIPLOPIA [None]
  - HALO VISION [None]
  - MANIA [None]
  - VISION BLURRED [None]
  - VISUAL ACUITY REDUCED [None]
